FAERS Safety Report 23983693 (Version 1)
Quarter: 2024Q2

REPORT INFORMATION
  Report Type: Spontaneous
  Country: US (occurrence: US)
  Receive Date: 20240618
  Receipt Date: 20240618
  Transmission Date: 20240716
  Serious: No
  Sender: FDA-Public Use
  Company Number: US-AUROBINDO-AUR-APL-2023-046244

PATIENT
  Age: 80 Year
  Sex: Male
  Weight: 74.8 kg

DRUGS (2)
  1. TAMSULOSIN HYDROCHLORIDE [Suspect]
     Active Substance: TAMSULOSIN HYDROCHLORIDE
     Indication: Bladder disorder
     Dosage: 1 DOSAGE FORM, AT BED TIME (FOR 4-5 MONTHS)
     Route: 065
  2. FAMOTIDINE [Concomitant]
     Active Substance: FAMOTIDINE
     Indication: Dyspepsia
     Dosage: 40 MILLIGRAM
     Route: 065

REACTIONS (4)
  - Abdominal discomfort [Recovering/Resolving]
  - Dysphagia [Recovering/Resolving]
  - Product size issue [Recovering/Resolving]
  - Wrong technique in product usage process [Recovering/Resolving]
